FAERS Safety Report 9611743 (Version 1)
Quarter: 2013Q4

REPORT INFORMATION
  Report Type: Spontaneous
  Country: US (occurrence: US)
  Receive Date: 20131010
  Receipt Date: 20131010
  Transmission Date: 20140711
  Serious: No
  Sender: FDA-Public Use
  Company Number: US-PFIZER INC-2013288254

PATIENT
  Age: 57 Year
  Sex: Female
  Weight: 65.76 kg

DRUGS (2)
  1. PREMARIN [Suspect]
     Indication: VULVOVAGINAL DRYNESS
     Dosage: HALF OF APPLICATOR, 2X/WEEK
     Route: 067
     Dates: start: 201309
  2. PREMARIN [Suspect]
     Dosage: HALF OF APPLICATOR, EVERY OTHER WEEK
     Route: 067
     Dates: start: 2013

REACTIONS (3)
  - Pruritus [Recovered/Resolved]
  - Inappropriate schedule of drug administration [Unknown]
  - Incorrect dose administered [Unknown]
